FAERS Safety Report 6709503-8 (Version None)
Quarter: 2010Q2

REPORT INFORMATION
  Report Type: 
  Country: None (occurrence: None)
  Receive Date: 20100504
  Receipt Date: 20100420
  Transmission Date: 20101027
  Serious: Yes (Hospitalization, Other)
  Sender: FDA-Public Use
  Company Number: US-BAYER-201011765NA

PATIENT
  Age: 28 Year
  Sex: Female
  Weight: 91 kg

DRUGS (25)
  1. YASMIN [Suspect]
     Indication: CONTRACEPTION
     Route: 048
     Dates: start: 20060418, end: 20060501
  2. YASMIN [Suspect]
     Route: 048
     Dates: start: 20060728, end: 20060801
  3. YASMIN [Suspect]
     Route: 048
     Dates: start: 20060907, end: 20061222
  4. YASMIN [Suspect]
     Route: 048
     Dates: start: 20070718, end: 20071231
  5. IRON SUPPLEMENT [Concomitant]
  6. MULTI-VITAMIN [Concomitant]
  7. OXYCODONE [Concomitant]
  8. TRILEPTAL [Concomitant]
  9. LORAZEPAM [Concomitant]
  10. LEVAQUIN [Concomitant]
  11. AMOXICILLIN [Concomitant]
  12. MEDROXYPROGESTERONE [Concomitant]
  13. CITALOPRAM HYDROBROMIDE [Concomitant]
  14. RISPERDAL [Concomitant]
  15. REPLIVA [Concomitant]
  16. FERROUS SULFATE TAB [Concomitant]
  17. DURADRIN [Concomitant]
  18. PROMETHAZINE [Concomitant]
  19. CIPROFLOXACIN [Concomitant]
  20. IOPHEN-C [Concomitant]
  21. HYDROCODONE BITARTRATE [Concomitant]
  22. CYCLOBENZAPRINE [Concomitant]
  23. PRILOSEC [Concomitant]
  24. DEPAKOTE ER [Concomitant]
  25. PERCOCET [Concomitant]
     Indication: PAIN

REACTIONS (4)
  - ABDOMINAL PAIN UPPER [None]
  - CHOLECYSTITIS CHRONIC [None]
  - CHOLELITHIASIS [None]
  - VOMITING [None]
